FAERS Safety Report 5267628-0 (Version None)
Quarter: 2007Q1

REPORT INFORMATION
  Report Type: 
  Country: None (occurrence: None)
  Receive Date: 20070316
  Receipt Date: 20070306
  Transmission Date: 20070707
  Serious: Yes (Other)
  Sender: FDA-Public Use
  Company Number: GB-GILEAD-2007-0011492

PATIENT
  Age: 70 Year
  Sex: Male

DRUGS (3)
  1. TRUVADA [Suspect]
  2. KALETRA [Concomitant]
  3. PHENYTOIN [Concomitant]

REACTIONS (2)
  - BLOOD CREATININE INCREASED [None]
  - DIABETES MELLITUS [None]
